FAERS Safety Report 11315366 (Version 3)
Quarter: 2015Q3

REPORT INFORMATION
  Report Type: Spontaneous
  Country: US (occurrence: US)
  Receive Date: 20150727
  Receipt Date: 20150910
  Transmission Date: 20151125
  Serious: Yes (Hospitalization)
  Sender: FDA-Public Use
  Company Number: US-ASTRAZENECA-2015SE70974

PATIENT
  Age: 60 Year
  Sex: Female

DRUGS (10)
  1. LASIX [Suspect]
     Active Substance: FUROSEMIDE
     Route: 065
  2. GABAPENTIN. [Concomitant]
     Active Substance: GABAPENTIN
  3. LISINOPRIL AND HYDROCHLOROTHIAZIDE [Suspect]
     Active Substance: HYDROCHLOROTHIAZIDE\LISINOPRIL
     Route: 048
  4. LISINOPRIL. [Suspect]
     Active Substance: LISINOPRIL
     Route: 048
  5. LOT OF MEDICATIONS [Concomitant]
     Indication: HYPERTENSION
  6. MOVANTIK [Suspect]
     Active Substance: NALOXEGOL OXALATE
     Indication: DIARRHOEA
     Route: 048
     Dates: start: 20150611, end: 20150611
  7. OXYCONTIN [Concomitant]
     Active Substance: OXYCODONE HYDROCHLORIDE
  8. LOT OF MEDICATIONS [Concomitant]
     Indication: DIABETES MELLITUS
  9. MOVANTIK [Suspect]
     Active Substance: NALOXEGOL OXALATE
     Indication: CONSTIPATION
     Route: 048
     Dates: start: 20150611, end: 20150611
  10. PERCOCET [Concomitant]
     Active Substance: ACETAMINOPHEN\OXYCODONE HYDROCHLORIDE
     Dosage: 5/325MG THREE TIMES A DAY

REACTIONS (6)
  - Vomiting [Unknown]
  - Abdominal pain [Unknown]
  - Type 2 diabetes mellitus [Recovering/Resolving]
  - Diarrhoea [Unknown]
  - Colitis [Recovered/Resolved]
  - Acute kidney injury [Recovered/Resolved]

NARRATIVE: CASE EVENT DATE: 20150611
